FAERS Safety Report 18585167 (Version 9)
Quarter: 2021Q2

REPORT INFORMATION
  Report Type: Report from Study
  Country: FR (occurrence: FR)
  Receive Date: 20201207
  Receipt Date: 20210505
  Transmission Date: 20210717
  Serious: Yes (Other)
  Sender: FDA-Public Use
  Company Number: FR-GLAXOSMITHKLINE-FR2020EME238457

PATIENT
  Age: 54 Year
  Sex: Male
  Weight: 86 kg

DRUGS (3)
  1. BELANTAMAB MAFODOTIN. [Suspect]
     Active Substance: BELANTAMAB MAFODOTIN
     Dosage: 2.5 MG/KG, CYC
     Route: 042
     Dates: start: 20200605
  2. BELANTAMAB MAFODOTIN. [Suspect]
     Active Substance: BELANTAMAB MAFODOTIN
     Dosage: 1.8 MG/KG, CYC
     Route: 042
     Dates: start: 20200624, end: 20200624
  3. BELANTAMAB MAFODOTIN. [Suspect]
     Active Substance: BELANTAMAB MAFODOTIN
     Indication: PLASMA CELL MYELOMA
     Dosage: 2.5 MG/KG, CYC
     Route: 042
     Dates: start: 20200515

REACTIONS (8)
  - Hyperviscosity syndrome [Unknown]
  - Inappropriate schedule of product administration [Unknown]
  - Thrombocytopenia [Unknown]
  - Visual acuity reduced [Recovered/Resolved]
  - Macular oedema [Unknown]
  - Venous occlusion [Unknown]
  - Plasma cell myeloma [Unknown]
  - Incorrect dose administered [Unknown]
